FAERS Safety Report 12982623 (Version 1)
Quarter: 2016Q4

REPORT INFORMATION
  Report Type: Spontaneous
  Country: US (occurrence: US)
  Receive Date: 20161128
  Receipt Date: 20161128
  Transmission Date: 20170207
  Serious: Yes (Hospitalization)
  Sender: FDA-Public Use
  Company Number: None

PATIENT
  Age: 87 Year
  Sex: Male
  Weight: 70.9 kg

DRUGS (1)
  1. OCTREOTIDE. [Suspect]
     Active Substance: OCTREOTIDE
     Indication: INTESTINAL OBSTRUCTION
     Route: 058
     Dates: start: 20161028, end: 20161031

REACTIONS (1)
  - Neutropenia [None]

NARRATIVE: CASE EVENT DATE: 20161029
